FAERS Safety Report 15237991 (Version 2)
Quarter: 2019Q1

REPORT INFORMATION
  Report Type: Spontaneous
  Country: BG (occurrence: BG)
  Receive Date: 20180803
  Receipt Date: 20190304
  Transmission Date: 20190417
  Serious: Yes (Hospitalization)
  Sender: FDA-Public Use
  Company Number: BG-MYLANLABS-2018M1057904

PATIENT
  Age: 5 Decade
  Sex: Male

DRUGS (2)
  1. HYDROCHLOROTHIAZIDE/IRBESARTAN [Suspect]
     Active Substance: HYDROCHLOROTHIAZIDE\IRBESARTAN
     Indication: HYPERTENSION
     Dosage: 150 MG IRBESARTAN /12.5 MG HYDROCHLOROTHIAZIDE, ONCE DAILY IN THE MORNING
     Route: 065
  2. ASPIRIN                            /00002701/ [Suspect]
     Active Substance: ASPIRIN
     Indication: HYPERTENSION
     Dosage: IN THE EVENING (0-0-1); ADMINISTERED FROM 1.5-2 YEARS
     Route: 065

REACTIONS (2)
  - Psoriasis [Unknown]
  - Malignant melanoma [Recovered/Resolved]
